FAERS Safety Report 9563680 (Version 1)
Quarter: 2013Q1

REPORT INFORMATION
  Report Type: Spontaneous
  Country: US (occurrence: None)
  Receive Date: 20121227
  Receipt Date: 20121227
  Transmission Date: 20140127
  Serious: Yes (Hospitalization)
  Sender: FDA-Public Use
  Company Number: PHEH2012US001739

PATIENT
  Age: 22 Year
  Sex: Male

DRUGS (2)
  1. EXJADE [Suspect]
     Indication: SICKLE CELL ANAEMIA
     Route: 048
  2. HYDROCODONE ( HYDROCODONE) [Concomitant]

REACTIONS (3)
  - Haemoglobin decreased [None]
  - Malaise [None]
  - Iron overload [None]
